FAERS Safety Report 4433710-0 (Version None)
Quarter: 2004Q3

REPORT INFORMATION
  Report Type: 
  Country: None (occurrence: None)
  Receive Date: 20040825
  Receipt Date: 20040825
  Transmission Date: 20050211
  Serious: Yes (Other)
  Sender: FDA-Public Use
  Company Number: None

PATIENT
  Age: 55 Year
  Sex: Female

DRUGS (2)
  1. AMEVIVE [Suspect]
     Indication: PSORIASIS
     Dosage: 15 MG IM Q WK X 12
     Route: 030
     Dates: start: 20040414, end: 20040630
  2. AMEVIVE [Suspect]

REACTIONS (3)
  - DIARRHOEA [None]
  - HAIR DISORDER [None]
  - NAUSEA [None]
